FAERS Safety Report 7070732-8 (Version None)
Quarter: 2010Q4

REPORT INFORMATION
  Report Type: 
  Country: None (occurrence: None)
  Receive Date: 20101029
  Receipt Date: 20100930
  Transmission Date: 20110411
  Serious: Yes (Other)
  Sender: FDA-Public Use
  Company Number: US-BAYER-201036830NA

PATIENT
  Age: 26 Year
  Sex: Female
  Weight: 118 kg

DRUGS (4)
  1. DROSPIRENONE AND ETHINYL ESTRADIOL [Suspect]
     Indication: CONTRACEPTION
     Route: 048
     Dates: start: 20071201, end: 20091201
  2. FLUOXETINE [Concomitant]
     Indication: DEPRESSION
     Dates: start: 20000101
  3. ALLEGRA [Concomitant]
     Indication: MULTIPLE ALLERGIES
     Dates: start: 20050101
  4. TRINESSA [Concomitant]

REACTIONS (9)
  - ABDOMINAL DISTENSION [None]
  - ABDOMINAL PAIN [None]
  - ABDOMINAL PAIN UPPER [None]
  - CHOLECYSTITIS CHRONIC [None]
  - CHOLELITHIASIS [None]
  - GALLBLADDER DISORDER [None]
  - MALAISE [None]
  - NAUSEA [None]
  - VOMITING [None]
